FAERS Safety Report 16204402 (Version 1)
Quarter: 2019Q2

REPORT INFORMATION
  Report Type: Report from Study
  Country: US (occurrence: US)
  Receive Date: 20190416
  Receipt Date: 20190416
  Transmission Date: 20190711
  Serious: Yes (Hospitalization)
  Sender: FDA-Public Use
  Company Number: PHEH2019US015839

PATIENT
  Age: 43 Year
  Sex: Female

DRUGS (1)
  1. GILENYA [Suspect]
     Active Substance: FINGOLIMOD HYDROCHLORIDE
     Indication: MULTIPLE SCLEROSIS
     Dosage: 0.5 MG, QOD
     Route: 048
     Dates: start: 20161207

REACTIONS (4)
  - Cholecystitis [Unknown]
  - Oropharyngeal pain [Unknown]
  - Prescribed underdose [Unknown]
  - Cholecystitis infective [Unknown]

NARRATIVE: CASE EVENT DATE: 20190404
